FAERS Safety Report 20503379 (Version 2)
Quarter: 2024Q2

REPORT INFORMATION
  Report Type: Spontaneous
  Country: US (occurrence: US)
  Receive Date: 20220222
  Receipt Date: 20240626
  Transmission Date: 20240716
  Serious: No
  Sender: FDA-Public Use
  Company Number: US-SANOFI-00974290

PATIENT
  Sex: Female
  Weight: 76.2 kg

DRUGS (1)
  1. LUMIZYME [Suspect]
     Active Substance: ALGLUCOSIDASE ALFA
     Dosage: DOSAGE FORM: SINGLE-DOSE VIAL
     Route: 042

REACTIONS (1)
  - No adverse event [Unknown]
